FAERS Safety Report 24556852 (Version 4)
Quarter: 2024Q4

REPORT INFORMATION
  Report Type: Spontaneous
  Country: TW (occurrence: TW)
  Receive Date: 20241028
  Receipt Date: 20241202
  Transmission Date: 20250115
  Serious: Yes (Death, Life-Threatening, Other)
  Sender: ALEXION PHARMACEUTICALS
  Company Number: TW-AstraZeneca-CH-00730456A

PATIENT
  Age: 75 Year

DRUGS (10)
  1. IMJUDO [Suspect]
     Active Substance: TREMELIMUMAB\TREMELIMUMAB-ACTL
  2. IMJUDO [Suspect]
     Active Substance: TREMELIMUMAB\TREMELIMUMAB-ACTL
  3. IMJUDO [Suspect]
     Active Substance: TREMELIMUMAB\TREMELIMUMAB-ACTL
  4. IMJUDO [Suspect]
     Active Substance: TREMELIMUMAB\TREMELIMUMAB-ACTL
  5. IMFINZI [Suspect]
     Active Substance: DURVALUMAB
  6. IMFINZI [Suspect]
     Active Substance: DURVALUMAB
  7. IMFINZI [Suspect]
     Active Substance: DURVALUMAB
  8. IMFINZI [Suspect]
     Active Substance: DURVALUMAB
  9. IMFINZI [Suspect]
     Active Substance: DURVALUMAB
     Dosage: UNK
  10. IMFINZI [Suspect]
     Active Substance: DURVALUMAB
     Dosage: UNK

REACTIONS (2)
  - Death [Fatal]
  - Salmonellosis [Unknown]
